FAERS Safety Report 9807627 (Version 1)
Quarter: 2014Q1

REPORT INFORMATION
  Report Type: Report from Study
  Country: US (occurrence: US)
  Receive Date: 20140110
  Receipt Date: 20140110
  Transmission Date: 20141002
  Serious: Yes (Other)
  Sender: FDA-Public Use
  Company Number: US-ROCHE-1330621

PATIENT
  Sex: Female

DRUGS (3)
  1. LUCENTIS [Suspect]
     Indication: BLINDNESS UNILATERAL
     Dosage: LEFT EYE
     Route: 050
  2. CRESTOR [Concomitant]
     Indication: BLOOD CHOLESTEROL
  3. ASPIRIN [Concomitant]

REACTIONS (4)
  - Cerebrovascular accident [Unknown]
  - Vision blurred [Not Recovered/Not Resolved]
  - Eye discharge [Unknown]
  - Photophobia [Not Recovered/Not Resolved]
